FAERS Safety Report 9681080 (Version 1)
Quarter: 2013Q4

REPORT INFORMATION
  Report Type: Spontaneous
  Country: US (occurrence: None)
  Receive Date: 20131108
  Receipt Date: 20131108
  Transmission Date: 20140711
  Serious: No
  Sender: FDA-Public Use
  Company Number: None

PATIENT
  Age: 51 Year
  Sex: Male
  Weight: 122.47 kg

DRUGS (2)
  1. PROPRANOLOL [Suspect]
     Indication: ANXIETY
     Dosage: 2 PILLS, TWICE DAILY, TAKEN BY MOUTH
     Route: 048
     Dates: start: 20131101, end: 20131107
  2. PROPRANOLOL [Suspect]
     Indication: HYPERTENSION
     Dosage: 2 PILLS, TWICE DAILY, TAKEN BY MOUTH
     Route: 048
     Dates: start: 20131101, end: 20131107

REACTIONS (5)
  - Product substitution issue [None]
  - Drug ineffective [None]
  - Palpitations [None]
  - Anxiety [None]
  - Hypertension [None]
